FAERS Safety Report 8124663-2 (Version None)
Quarter: 2012Q1

REPORT INFORMATION
  Report Type: 
  Country: None (occurrence: None)
  Receive Date: 20120209
  Receipt Date: 20120209
  Transmission Date: 20120608
  Serious: No
  Sender: FDA-Public Use
  Company Number: None

PATIENT
  Age: 58 Year
  Sex: Female
  Weight: 83.914 kg

DRUGS (1)
  1. RESTASIS [Suspect]
     Indication: DRY EYE
     Dosage: DROP
     Route: 047
     Dates: start: 20111207, end: 20111209

REACTIONS (6)
  - LACRIMATION INCREASED [None]
  - PERIORBITAL OEDEMA [None]
  - FOREIGN BODY SENSATION IN EYES [None]
  - INSOMNIA [None]
  - INSTILLATION SITE PAIN [None]
  - VISION BLURRED [None]
